FAERS Safety Report 9416292 (Version 1)
Quarter: 2013Q3

REPORT INFORMATION
  Report Type: Spontaneous
  Country: CA (occurrence: CA)
  Receive Date: 20130724
  Receipt Date: 20130724
  Transmission Date: 20140515
  Serious: Yes (Other)
  Sender: FDA-Public Use
  Company Number: CA-RANBAXY-2013US-71480

PATIENT
  Age: 30 Year
  Sex: Female

DRUGS (6)
  1. CLINDAMYCIN [Suspect]
     Indication: MASTITIS
     Dosage: UNK
     Route: 065
  2. VANCOMYCIN [Suspect]
     Indication: MASTITIS
     Dosage: UNK
     Route: 065
  3. CEFAZOLIN [Concomitant]
     Indication: MASTITIS
     Dosage: UNK
     Route: 065
  4. PIPERACILLIN/TAZOBACTAM [Concomitant]
     Indication: MASTITIS
     Dosage: UNK
     Route: 065
  5. CEFTRIAXONE [Concomitant]
     Indication: MASTITIS
     Dosage: UNK
     Route: 065
  6. METRONIDAZOLE [Concomitant]
     Indication: MASTITIS
     Dosage: UNK
     Route: 065

REACTIONS (3)
  - Drug hypersensitivity [Unknown]
  - Red man syndrome [Recovered/Resolved]
  - Exposure during pregnancy [Recovered/Resolved]
